FAERS Safety Report 16166663 (Version 1)
Quarter: 2019Q2

REPORT INFORMATION
  Report Type: Spontaneous
  Country: US (occurrence: US)
  Receive Date: 20190407
  Receipt Date: 20190407
  Transmission Date: 20190711
  Serious: No
  Sender: FDA-Public Use
  Company Number: US-ELI_LILLY_AND_COMPANY-US201903009878

PATIENT
  Sex: Female

DRUGS (2)
  1. CYMBALTA [Suspect]
     Active Substance: DULOXETINE HYDROCHLORIDE
     Indication: DEPRESSED MOOD
     Dosage: UNK, UNKNOWN
     Route: 065
     Dates: start: 201901
  2. STRENSIQ [Suspect]
     Active Substance: ASFOTASE ALFA
     Indication: HYPOPHOSPHATASIA
     Dosage: UNK, UNKNOWN
     Route: 065

REACTIONS (6)
  - Anosmia [Unknown]
  - Depressed mood [Unknown]
  - Nausea [Unknown]
  - Weight increased [Unknown]
  - Anxiety [Unknown]
  - Pain of skin [Recovering/Resolving]
